FAERS Safety Report 13755904 (Version 2)
Quarter: 2017Q3

REPORT INFORMATION
  Report Type: Spontaneous
  Country: AR (occurrence: AR)
  Receive Date: 20170714
  Receipt Date: 20170714
  Transmission Date: 20171127
  Serious: Yes (Hospitalization)
  Sender: FDA-Public Use
  Company Number: PHHY2017AR103264

PATIENT
  Age: 70 Year
  Sex: Female

DRUGS (2)
  1. TEGRETOL [Suspect]
     Active Substance: CARBAMAZEPINE
     Indication: EPILEPSY
     Dosage: 200 MG, QID
     Route: 065
  2. GENTEAL MILD [Suspect]
     Active Substance: HYPROMELLOSE 2910 (4000 MPA.S)
     Indication: VISUAL IMPAIRMENT
     Dosage: ON DEMAND
     Route: 065

REACTIONS (8)
  - Ocular hypertension [Unknown]
  - Anxiety [Unknown]
  - Malaise [Unknown]
  - Crying [Unknown]
  - Diplopia [Unknown]
  - Swelling [Unknown]
  - Visual impairment [Not Recovered/Not Resolved]
  - Nervousness [Unknown]
